FAERS Safety Report 4948429-7 (Version None)
Quarter: 2006Q1

REPORT INFORMATION
  Report Type: 
  Country: None (occurrence: None)
  Receive Date: 20060313
  Receipt Date: 20060306
  Transmission Date: 20060701
  Serious: Yes (Hospitalization)
  Sender: FDA-Public Use
  Company Number: 13625

PATIENT
  Age: 56 Year
  Sex: Female

DRUGS (6)
  1. METHOTREXATE [Suspect]
     Indication: BONE SARCOMA
     Dosage: 8000 MG/M2 DAILY; IV
     Route: 042
     Dates: start: 20060130, end: 20060130
  2. DIAMOX [Concomitant]
  3. TAGAMET [Concomitant]
  4. NEOPHAGEN   /00782501/ [Concomitant]
  5. ZOFRAN [Concomitant]
  6. MEYLON [Concomitant]

REACTIONS (1)
  - DISSEMINATED INTRAVASCULAR COAGULATION [None]
